FAERS Safety Report 9845248 (Version 3)
Quarter: 2014Q1

REPORT INFORMATION
  Report Type: Spontaneous
  Country: US (occurrence: US)
  Receive Date: 20140127
  Receipt Date: 20140303
  Transmission Date: 20141002
  Serious: Yes (Hospitalization, Disabling, Other)
  Sender: FDA-Public Use
  Company Number: US-009507513-0904USA00416

PATIENT
  Sex: Female
  Weight: 78.18 kg

DRUGS (7)
  1. FOSAMAX [Suspect]
     Dosage: 10 MG, UNK
     Route: 048
     Dates: start: 19970107, end: 20000206
  2. FOSAMAX [Suspect]
     Dosage: 5 MG, UNK
     Route: 048
     Dates: start: 20000306
  3. ONCLAST INJECTION 5MG, 10MG [Suspect]
     Indication: BREAST CANCER METASTATIC
     Route: 042
  4. AREDIA [Suspect]
     Indication: BREAST CANCER METASTATIC
     Dosage: 90 MG, UNK
     Route: 041
     Dates: start: 200004, end: 200609
  5. SYNTHROID [Concomitant]
     Dates: start: 1980
  6. LORTAB [Concomitant]
     Indication: PAIN
     Dosage: 5/500-10/325
     Route: 048
  7. OXYCODONE [Concomitant]
     Indication: BREAKTHROUGH PAIN
     Dosage: 5 MG, PRN

REACTIONS (89)
  - Jaw disorder [Unknown]
  - Gingival cancer [Unknown]
  - Confusional state [Unknown]
  - Hallucination [Not Recovered/Not Resolved]
  - Cellulitis [Recovered/Resolved]
  - Anxiety [Unknown]
  - Dehydration [Unknown]
  - Electrolyte imbalance [Unknown]
  - Cellulitis [Unknown]
  - Blindness [Unknown]
  - Cellulitis [Unknown]
  - Osteonecrosis of jaw [Unknown]
  - Osteonecrosis of jaw [Not Recovered/Not Resolved]
  - Osteomyelitis [Not Recovered/Not Resolved]
  - Cellulitis [Unknown]
  - Road traffic accident [Unknown]
  - Impaired healing [Unknown]
  - Gingival disorder [Not Recovered/Not Resolved]
  - Periodontal disease [Recovered/Resolved]
  - Hormone level abnormal [Not Recovered/Not Resolved]
  - Fracture [Unknown]
  - Neck injury [Unknown]
  - Back injury [Unknown]
  - Pain [Not Recovered/Not Resolved]
  - Renal disorder [Unknown]
  - Diabetes mellitus inadequate control [Unknown]
  - Fistula [Not Recovered/Not Resolved]
  - Cellulitis [Recovered/Resolved]
  - Erythroplasia [Unknown]
  - Local swelling [Not Recovered/Not Resolved]
  - Loose tooth [Unknown]
  - Tooth loss [Unknown]
  - Dental caries [Unknown]
  - Tooth fracture [Unknown]
  - Trismus [Unknown]
  - Acute sinusitis [Unknown]
  - Oedema mucosal [Recovering/Resolving]
  - Oral disorder [Unknown]
  - Major depression [Not Recovered/Not Resolved]
  - Fibula fracture [Recovering/Resolving]
  - Foot deformity [Not Recovered/Not Resolved]
  - Exostosis [Unknown]
  - Foot fracture [Unknown]
  - Gingivitis [Unknown]
  - Ankle fracture [Recovering/Resolving]
  - Neuropathic arthropathy [Not Recovered/Not Resolved]
  - Peripheral vascular disorder [Unknown]
  - Treatment noncompliance [Unknown]
  - Skin ulcer [Recovered/Resolved]
  - Rhinitis allergic [Unknown]
  - Nephrolithiasis [Unknown]
  - Blood glucose fluctuation [Unknown]
  - Blood potassium decreased [Unknown]
  - Sleep disorder [Not Recovered/Not Resolved]
  - Poor dental condition [Unknown]
  - Loose tooth [Unknown]
  - Eating disorder [Not Recovered/Not Resolved]
  - Adrenal adenoma [Unknown]
  - Orthostatic hypotension [Unknown]
  - Psychogenic pain disorder [Not Recovered/Not Resolved]
  - Drug dependence [Not Recovered/Not Resolved]
  - Dysthymic disorder [Not Recovered/Not Resolved]
  - Oliguria [Unknown]
  - Chronic obstructive pulmonary disease [Not Recovered/Not Resolved]
  - Wound [Unknown]
  - Cellulitis [Unknown]
  - Varicose vein [Unknown]
  - Rheumatoid arthritis [Unknown]
  - Fall [Unknown]
  - Fall [Unknown]
  - Laceration [Unknown]
  - Contusion [Unknown]
  - Cerebral small vessel ischaemic disease [Not Recovered/Not Resolved]
  - Foot deformity [Unknown]
  - Sinus disorder [Unknown]
  - Spinal compression fracture [Unknown]
  - Kyphosis [Unknown]
  - Insomnia [Recovering/Resolving]
  - Chest discomfort [Unknown]
  - Asthenia [Unknown]
  - Dizziness [Unknown]
  - Aphthous stomatitis [Unknown]
  - Arthralgia [Not Recovered/Not Resolved]
  - Swelling face [Recovering/Resolving]
  - Nausea [Unknown]
  - Constipation [Unknown]
  - Treatment failure [Unknown]
  - Vomiting [Unknown]
  - Gastrooesophageal reflux disease [Unknown]
